FAERS Safety Report 8241728-5 (Version None)
Quarter: 2012Q1

REPORT INFORMATION
  Report Type: 
  Country: None (occurrence: None)
  Receive Date: 20120328
  Receipt Date: 20120325
  Transmission Date: 20120608
  Serious: No
  Sender: FDA-Public Use
  Company Number: US-PFIZER INC-2011223416

PATIENT
  Sex: Female
  Weight: 74.83 kg

DRUGS (10)
  1. LYRICA [Suspect]
     Indication: NEUROPATHY PERIPHERAL
     Dosage: 75 MG, 2X/DAY
     Route: 048
     Dates: start: 20111101, end: 20110101
  2. IBUPROFEN [Concomitant]
     Indication: PAIN IN EXTREMITY
     Dosage: 200 MG, AS NEEDED
  3. LYRICA [Suspect]
     Indication: HERPES ZOSTER
     Dosage: 75 MG, 2X/DAY
     Route: 048
     Dates: start: 20110801
  4. AMITRIPTYLINE [Concomitant]
     Indication: NEURALGIA
     Dosage: 25 MG, DAILY
  5. LISINOPRIL [Concomitant]
     Indication: HYPERTENSION
     Dosage: 2.5 MG, UNK
  6. NEURONTIN [Suspect]
     Indication: NEURALGIA
     Dosage: 400 MG, UNK
  7. LYRICA [Suspect]
     Indication: NEURALGIA
  8. AMITRIPTYLINE [Concomitant]
     Indication: MYALGIA
  9. LYRICA [Suspect]
     Indication: PAIN
  10. METOPROLOL [Concomitant]
     Indication: HYPERTENSION
     Dosage: 50 MG, UNK

REACTIONS (5)
  - DIZZINESS [None]
  - VISION BLURRED [None]
  - ALOPECIA [None]
  - DRUG INEFFECTIVE [None]
  - ARTHRALGIA [None]
